FAERS Safety Report 8762363 (Version 3)
Quarter: 2013Q3

REPORT INFORMATION
  Report Type: Report from Study
  Country: US (occurrence: US)
  Receive Date: 20120830
  Receipt Date: 20130903
  Transmission Date: 20140515
  Serious: Yes (Hospitalization)
  Sender: FDA-Public Use
  Company Number: PHHO2012US012532

PATIENT
  Age: 64 Year
  Sex: Male
  Weight: 169 kg

DRUGS (3)
  1. ALISKIREN [Suspect]
     Indication: CARDIOVASCULAR DISORDER
     Dosage: UNK
     Route: 048
     Dates: start: 20100308
  2. METOLAZONE [Suspect]
     Indication: OEDEMA PERIPHERAL
     Dosage: 10 MG, QD
     Dates: start: 20120621, end: 20120802
  3. TORSEMIDE [Suspect]
     Indication: OEDEMA PERIPHERAL
     Dosage: 100 MG, QD
     Dates: start: 20120518, end: 20120802

REACTIONS (1)
  - Renal failure acute [Not Recovered/Not Resolved]
